FAERS Safety Report 13239419 (Version 1)
Quarter: 2017Q1

REPORT INFORMATION
  Report Type: Report from Study
  Country: US (occurrence: US)
  Receive Date: 20170216
  Receipt Date: 20170216
  Transmission Date: 20170428
  Serious: Yes (Other)
  Sender: FDA-Public Use
  Company Number: US-HLSUS-2017-US-000047

PATIENT
  Age: 73 Year
  Sex: Female
  Weight: 80.02 kg

DRUGS (3)
  1. ABILIFY [Concomitant]
     Active Substance: ARIPIPRAZOLE
     Indication: SCHIZOPHRENIA
     Dosage: 10 MG ONCE DAILY
     Route: 048
     Dates: start: 20131014, end: 20161228
  2. CLOZARIL [Suspect]
     Active Substance: CLOZAPINE
     Indication: SCHIZOPHRENIA
     Dosage: 100 MG BED TIME
     Route: 048
     Dates: start: 20130223, end: 20161228
  3. ZOLOFT [Concomitant]
     Active Substance: SERTRALINE HYDROCHLORIDE
     Indication: DEPRESSION
     Dosage: 100 MG ONCE DAILY
     Route: 048
     Dates: start: 20131014, end: 20161228

REACTIONS (4)
  - Urosepsis [Recovered/Resolved]
  - Lethargy [Unknown]
  - Pneumonia aspiration [Unknown]
  - Respiratory failure [Unknown]

NARRATIVE: CASE EVENT DATE: 20161228
